FAERS Safety Report 9335995 (Version 1)
Quarter: 2013Q2

REPORT INFORMATION
  Report Type: Report from Study
  Country: CL (occurrence: CL)
  Receive Date: 20130607
  Receipt Date: 20130607
  Transmission Date: 20140414
  Serious: Yes (Death)
  Sender: FDA-Public Use
  Company Number: CL-ROCHE-1216682

PATIENT
  Age: 71 Year
  Sex: Female
  Weight: 54 kg

DRUGS (4)
  1. XELODA [Suspect]
     Indication: COLON CANCER
     Route: 048
     Dates: start: 20130322
  2. XELODA [Suspect]
     Route: 048
     Dates: start: 20130402
  3. OXALIPLATIN [Suspect]
     Indication: PRODUCT USED FOR UNKNOWN INDICATION
     Route: 042
     Dates: start: 20130322
  4. OXALIPLATIN [Suspect]
     Route: 042
     Dates: start: 20130402

REACTIONS (3)
  - Blood bilirubin increased [Not Recovered/Not Resolved]
  - Scleral discolouration [Not Recovered/Not Resolved]
  - Multi-organ failure [Fatal]
